FAERS Safety Report 5220950-6 (Version None)
Quarter: 2007Q1

REPORT INFORMATION
  Report Type: 
  Country: None (occurrence: None)
  Receive Date: 20070123
  Receipt Date: 20070108
  Transmission Date: 20070707
  Serious: Yes (Other)
  Sender: FDA-Public Use
  Company Number: 2007RR-05187

PATIENT
  Age: 24 Year
  Sex: Male

DRUGS (2)
  1. FLUCONAZOLE [Suspect]
     Indication: CANDIDIASIS
     Dosage: 50 MG, QID, ORAL
     Route: 048
     Dates: start: 20061110, end: 20061113
  2. DIFLUCAN [Suspect]
     Indication: CANDIDIASIS
     Dosage: 50 MG, QID, ORAL
     Route: 048
     Dates: start: 20061110, end: 20061113

REACTIONS (5)
  - ACCIDENTAL OVERDOSE [None]
  - ALANINE AMINOTRANSFERASE INCREASED [None]
  - DRUG ADMINISTRATION ERROR [None]
  - GAMMA-GLUTAMYLTRANSFERASE INCREASED [None]
  - HAEMODIALYSIS [None]
